FAERS Safety Report 19174671 (Version 3)
Quarter: 2021Q2

REPORT INFORMATION
  Report Type: Spontaneous
  Country: JP (occurrence: JP)
  Receive Date: 20210423
  Receipt Date: 20210604
  Transmission Date: 20210717
  Serious: Yes (Hospitalization)
  Sender: FDA-Public Use
  Company Number: JP-ORGANON-O2104JPN001610

PATIENT
  Age: 89 Year
  Sex: Female

DRUGS (10)
  1. ZETIA [Concomitant]
     Active Substance: EZETIMIBE
     Indication: DYSLIPIDAEMIA
     Dosage: 10 MILLIGRAM/DAY
     Route: 048
  2. SIGMART [Concomitant]
     Active Substance: NICORANDIL
     Indication: HYPERTENSION
     Dosage: 15 MILLIGRAM/DAY
     Route: 065
  3. BASEN [VOGLIBOSE] [Concomitant]
     Active Substance: VOGLIBOSE
     Indication: DIABETES MELLITUS
     Dosage: 0.6 MILLIGRAM/DAY
     Route: 048
  4. MEVALOTIN [Concomitant]
     Active Substance: PRAVASTATIN SODIUM
     Indication: HYPERTENSION
     Dosage: 10 MILLIGRAM/DAY
     Route: 048
  5. BONALON [Suspect]
     Active Substance: ALENDRONATE SODIUM
     Indication: OSTEOPOROSIS
     Dosage: 35 MILLIGRAM PER WEEK
     Route: 048
     Dates: start: 2016, end: 20190304
  6. BAYASPIRIN [Concomitant]
     Active Substance: ASPIRIN
     Dosage: 100 MILLIGRAM/DAY
     Route: 048
  7. AMLODIN [Concomitant]
     Active Substance: AMLODIPINE BESYLATE
     Dosage: 2.5 MILLIGRAM/DAY
     Route: 048
  8. SODIUM RISEDRONATE HYDRATE [Suspect]
     Active Substance: RISEDRONATE SODIUM HEMI-PENTAHYDRATE
     Indication: OSTEOPOROSIS
     Dosage: NI
     Route: 048
  9. AMLODIN [Concomitant]
     Active Substance: AMLODIPINE BESYLATE
     Indication: HYPERTENSION
     Dosage: 5 MILLIGRAM/DAY
     Route: 048
  10. LASIX [Concomitant]
     Active Substance: FUROSEMIDE
     Indication: HYPERTENSION
     Dosage: 20 MILLIGRAM/DAY
     Route: 065

REACTIONS (1)
  - Ulna fracture [Recovered/Resolved]

NARRATIVE: CASE EVENT DATE: 20190304
